FAERS Safety Report 23843782 (Version 2)
Quarter: 2024Q2

REPORT INFORMATION
  Report Type: Spontaneous
  Country: US (occurrence: US)
  Receive Date: 20240510
  Receipt Date: 20240516
  Transmission Date: 20240716
  Serious: No
  Sender: FDA-Public Use
  Company Number: US-ABBVIE-5751946

PATIENT
  Sex: Female

DRUGS (2)
  1. FLUOROMETHOLONE [Suspect]
     Active Substance: FLUOROMETHOLONE
     Indication: Corneal degeneration
     Route: 047
     Dates: start: 20240430
  2. FLUOROMETHOLONE [Suspect]
     Active Substance: FLUOROMETHOLONE
     Indication: Dry eye

REACTIONS (5)
  - Eye irritation [Recovering/Resolving]
  - Eye swelling [Unknown]
  - Off label use [Unknown]
  - Eye disorder [Recovering/Resolving]
  - Lacrimation increased [Recovering/Resolving]

NARRATIVE: CASE EVENT DATE: 20240101
